FAERS Safety Report 15832975 (Version 1)
Quarter: 2019Q1

REPORT INFORMATION
  Report Type: Spontaneous
  Country: CN (occurrence: CN)
  Receive Date: 20190116
  Receipt Date: 20190116
  Transmission Date: 20190417
  Serious: Yes (Other)
  Sender: FDA-Public Use
  Company Number: CN-MYLANLABS-2019M1003494

PATIENT
  Sex: Female

DRUGS (9)
  1. DEXAMETHASONE. [Suspect]
     Active Substance: DEXAMETHASONE
     Indication: BRAIN OEDEMA
     Route: 065
     Dates: start: 20180208, end: 20180210
  2. FRUCTOSE W/GLYCEROL/SODIUM CHLORIDE [Suspect]
     Active Substance: FRUCTOSE\GLYCERIN\SODIUM CHLORIDE
     Indication: PERITUMOURAL OEDEMA
  3. HERCEPTIN [Suspect]
     Active Substance: TRASTUZUMAB
     Indication: INVASIVE BREAST CARCINOMA
     Route: 065
     Dates: start: 2017
  4. FRUCTOSE W/GLYCEROL/SODIUM CHLORIDE [Suspect]
     Active Substance: FRUCTOSE\GLYCERIN\SODIUM CHLORIDE
     Indication: BRAIN OEDEMA
     Route: 065
     Dates: start: 20180201, end: 20180210
  5. VINORELBINE [Suspect]
     Active Substance: VINORELBINE\VINORELBINE TARTRATE
     Indication: INVASIVE BREAST CARCINOMA
     Dosage: UNK
     Route: 065
     Dates: start: 2017
  6. CISPLATIN. [Suspect]
     Active Substance: CISPLATIN
     Indication: INVASIVE BREAST CARCINOMA
     Route: 065
     Dates: start: 2017
  7. DEXAMETHASONE. [Suspect]
     Active Substance: DEXAMETHASONE
     Indication: PERITUMOURAL OEDEMA
  8. MANNITOL. [Suspect]
     Active Substance: MANNITOL
     Indication: PERITUMOURAL OEDEMA
     Dosage: 250 MILLIGRAM, Q6H
     Route: 065
     Dates: start: 20180208, end: 20180210
  9. MANNITOL. [Suspect]
     Active Substance: MANNITOL
     Indication: BRAIN OEDEMA
     Route: 065
     Dates: start: 20180201, end: 20180207

REACTIONS (3)
  - Gastrointestinal disorder [Unknown]
  - Bone marrow failure [Unknown]
  - Drug ineffective [Unknown]
